FAERS Safety Report 16462221 (Version 1)
Quarter: 2019Q2

REPORT INFORMATION
  Report Type: Spontaneous
  Country: US (occurrence: US)
  Receive Date: 20190621
  Receipt Date: 20190621
  Transmission Date: 20190711
  Serious: No
  Sender: FDA-Public Use
  Company Number: US-KYOWAKIRIN-2019BKK009605

PATIENT

DRUGS (1)
  1. SANCUSO [Suspect]
     Active Substance: GRANISETRON
     Indication: PROPHYLAXIS OF NAUSEA AND VOMITING
     Dosage: APPLY PATCH 24 HOURS AFTER CHEMO. REMOVE PATCH EVERY 7 DAYS, THEN REMOVE PATCH 24 HR PRIOR TO NEXT T
     Route: 065

REACTIONS (1)
  - Inappropriate schedule of product administration [Unknown]
